FAERS Safety Report 21402990 (Version 1)
Quarter: 2022Q3

REPORT INFORMATION
  Report Type: Spontaneous
  Country: US (occurrence: None)
  Receive Date: 20220930
  Receipt Date: 20220930
  Transmission Date: 20221026
  Serious: Yes (Death, Life-Threatening)
  Sender: FDA-Public Use
  Company Number: None

PATIENT
  Age: 77 Year
  Sex: Female
  Weight: 106 kg

DRUGS (1)
  1. APIXABAN [Suspect]
     Active Substance: APIXABAN
     Indication: Atrial fibrillation
     Dosage: FREQUENCY : TWICE A DAY;?
     Route: 048
     Dates: start: 20220908, end: 20220923

REACTIONS (10)
  - Dyspnoea [None]
  - Anxiety [None]
  - Hypoxia [None]
  - Respiratory tract haemorrhage [None]
  - Endotracheal intubation complication [None]
  - Airway peak pressure increased [None]
  - Oxygen saturation decreased [None]
  - Bradycardia [None]
  - Pulseless electrical activity [None]
  - Cardiac arrest [None]

NARRATIVE: CASE EVENT DATE: 20220923
